FAERS Safety Report 5375944-7 (Version None)
Quarter: 2007Q3

REPORT INFORMATION
  Report Type: 
  Country: None (occurrence: None)
  Receive Date: 20070702
  Receipt Date: 20070621
  Transmission Date: 20080115
  Serious: Yes (Other)
  Sender: FDA-Public Use
  Company Number: US-JNJFOC-20070605364

PATIENT
  Sex: Female
  Weight: 121 kg

DRUGS (1)
  1. DOXORUBICIN HCL [Suspect]
     Indication: ENDOMETRIAL CANCER
     Route: 042

REACTIONS (1)
  - HYPERSENSITIVITY [None]
